FAERS Safety Report 7021382-0 (Version None)
Quarter: 2010Q3

REPORT INFORMATION
  Report Type: 
  Country: None (occurrence: None)
  Receive Date: 20100929
  Receipt Date: 20100922
  Transmission Date: 20110219
  Serious: No
  Sender: FDA-Public Use
  Company Number: US-PFIZER INC-2010120793

PATIENT

DRUGS (2)
  1. GEODON [Suspect]
     Dosage: 60 MG, 2X/DAY
  2. TEGRETOL [Suspect]
     Dosage: UNK

REACTIONS (1)
  - DIPLOPIA [None]
